FAERS Safety Report 15375974 (Version 1)
Quarter: 2018Q3

REPORT INFORMATION
  Report Type: Spontaneous
  Country: US (occurrence: US)
  Receive Date: 20180912
  Receipt Date: 20180912
  Transmission Date: 20181010
  Serious: No
  Sender: FDA-Public Use
  Company Number: US-PFIZER INC-2018364624

PATIENT
  Age: 17 Year
  Sex: Female
  Weight: 120 kg

DRUGS (1)
  1. DEPO?PROVERA [Suspect]
     Active Substance: MEDROXYPROGESTERONE ACETATE
     Indication: CONTRACEPTION
     Dosage: 150 MG, CYCLIC (ONCE EVERY 3 MONTHS)

REACTIONS (2)
  - Obesity [Unknown]
  - Drug administration error [Unknown]

NARRATIVE: CASE EVENT DATE: 20180905
